FAERS Safety Report 16806042 (Version 7)
Quarter: 2021Q1

REPORT INFORMATION
  Report Type: Report from Study
  Country: US (occurrence: US)
  Receive Date: 20190913
  Receipt Date: 20210224
  Transmission Date: 20210419
  Serious: No
  Sender: FDA-Public Use
  Company Number: PHEH2019US037697

PATIENT
  Sex: Female
  Weight: 130 kg

DRUGS (6)
  1. TREPROSTINIL. [Suspect]
     Active Substance: TREPROSTINIL
     Dosage: UNK
     Route: 065
  2. TREPROSTINIL. [Suspect]
     Active Substance: TREPROSTINIL
     Dosage: 45 NG/KG/MIN, CONTINUOUS
     Route: 042
     Dates: start: 20190418
  3. TADALAFIL. [Concomitant]
     Active Substance: TADALAFIL
     Indication: PRODUCT USED FOR UNKNOWN INDICATION
     Dosage: UNK
     Route: 065
  4. TREPROSTINIL. [Suspect]
     Active Substance: TREPROSTINIL
     Dosage: UNK (40 NG/KG/MIN)
     Route: 065
     Dates: start: 20190418
  5. TREPROSTINIL. [Suspect]
     Active Substance: TREPROSTINIL
     Indication: HYPERTENSION
     Dosage: 45 NG/KG/MIN, CCNTINUOUS
     Route: 042
     Dates: start: 20190418
  6. AMBRISENTAN [Concomitant]
     Active Substance: AMBRISENTAN
     Indication: PRODUCT USED FOR UNKNOWN INDICATION
     Dosage: UNK
     Route: 065

REACTIONS (8)
  - Catheter site erythema [Unknown]
  - Nasopharyngitis [Unknown]
  - Pain [Unknown]
  - Fatigue [Unknown]
  - Functional gastrointestinal disorder [Unknown]
  - Arthropod bite [Unknown]
  - Flushing [Unknown]
  - Peripheral swelling [Unknown]
